FAERS Safety Report 20981118 (Version 1)
Quarter: 2022Q2

REPORT INFORMATION
  Report Type: Spontaneous
  Country: AR (occurrence: AR)
  Receive Date: 20220620
  Receipt Date: 20220620
  Transmission Date: 20220721
  Serious: Yes (Other)
  Sender: FDA-Public Use
  Company Number: AR-PFIZER INC-PV202200003952

PATIENT
  Age: 74 Year
  Sex: Female

DRUGS (2)
  1. IBRANCE [Suspect]
     Active Substance: PALBOCICLIB
     Indication: Breast cancer metastatic
     Dosage: 100 MG, CYCLIC (DAILY, 3 WEEKS ON/1 WEEK OFF)
     Dates: start: 20200624, end: 20220609
  2. FULVESTRANT [Concomitant]
     Active Substance: FULVESTRANT

REACTIONS (1)
  - Major depression [Not Recovered/Not Resolved]
